FAERS Safety Report 5805983-0 (Version None)
Quarter: 2008Q3

REPORT INFORMATION
  Report Type: 
  Country: None (occurrence: None)
  Receive Date: 20080710
  Receipt Date: 20080703
  Transmission Date: 20090109
  Serious: Yes (Other)
  Sender: FDA-Public Use
  Company Number: B0360779A

PATIENT
  Age: 49 Year
  Sex: Female

DRUGS (11)
  1. PAROXETINE HCL [Suspect]
     Route: 065
     Dates: start: 20000107
  2. CIPRAMIL [Concomitant]
     Dates: start: 20020409
  3. IMIPRAMINE [Concomitant]
     Dates: start: 20020305
  4. NAPROXEN [Concomitant]
  5. OMEPRAZOLE [Concomitant]
  6. PERINDOPRIL ERBUMINE [Concomitant]
  7. HYDROXYCHLOROQUINE SULFATE [Concomitant]
  8. MYCOPHENOLATE MOFETIL [Concomitant]
  9. INHALER [Concomitant]
  10. ANTIHISTAMINES [Concomitant]
  11. AMITRIPTYLINE HCL [Concomitant]

REACTIONS (7)
  - AGGRESSION [None]
  - AGITATION [None]
  - DRUG WITHDRAWAL SYNDROME [None]
  - HYPERHIDROSIS [None]
  - JOINT STIFFNESS [None]
  - NAUSEA [None]
  - VOMITING [None]
